FAERS Safety Report 21096893 (Version 3)
Quarter: 2022Q3

REPORT INFORMATION
  Report Type: Report from Study
  Country: DE (occurrence: DE)
  Receive Date: 20220718
  Receipt Date: 20220824
  Transmission Date: 20221026
  Serious: Yes (Hospitalization, Other)
  Sender: FDA-Public Use
  Company Number: DE-BRISTOL-MYERS SQUIBB COMPANY-2022-070553

PATIENT
  Age: 54 Year
  Sex: Female
  Weight: 78 kg

DRUGS (10)
  1. LENALIDOMIDE [Suspect]
     Active Substance: LENALIDOMIDE
     Indication: Plasma cell myeloma
     Route: 048
     Dates: start: 20200818, end: 20220629
  2. LENALIDOMIDE [Suspect]
     Active Substance: LENALIDOMIDE
     Route: 065
     Dates: start: 20220809
  3. DEXAMETHASONE [Suspect]
     Active Substance: DEXAMETHASONE
     Indication: Plasma cell myeloma
     Route: 048
     Dates: start: 20200818, end: 20210602
  4. ISATUXIMAB [Suspect]
     Active Substance: ISATUXIMAB
     Indication: Plasma cell myeloma
     Route: 042
     Dates: start: 20200818, end: 20201214
  5. BORTEZOMIB [Suspect]
     Active Substance: BORTEZOMIB
     Indication: Plasma cell myeloma
     Route: 058
     Dates: start: 20200818, end: 20201217
  6. METRONIDAZOLE [Concomitant]
     Active Substance: METRONIDAZOLE
     Indication: Antibiotic therapy
     Dosage: THREE TIMES IN A DAY
     Route: 065
     Dates: start: 20220701, end: 20220706
  7. CYCLOPHOSPHAMIDE [Concomitant]
     Active Substance: CYCLOPHOSPHAMIDE
     Indication: Plasma cell myeloma
     Dates: start: 20210112
  8. LENOGRASTIM [Concomitant]
     Active Substance: LENOGRASTIM
     Indication: Plasma cell myeloma
     Dates: start: 20210117
  9. MELPHALAN [Concomitant]
     Active Substance: MELPHALAN
     Indication: Plasma cell myeloma
     Dosage: HIGH DOSE MELPHALAN
     Dates: start: 20210212
  10. METHOTREXATE [Concomitant]
     Active Substance: METHOTREXATE
     Indication: Rheumatoid arthritis
     Dosage: THREE TIMES IN A DAY
     Route: 058
     Dates: start: 20210429, end: 20220704

REACTIONS (2)
  - Enterocolitis viral [Recovered/Resolved]
  - Adenovirus infection [Recovered/Resolved]

NARRATIVE: CASE EVENT DATE: 20220701
